FAERS Safety Report 12422682 (Version 1)
Quarter: 2016Q2

REPORT INFORMATION
  Report Type: Report from Study
  Country: CN (occurrence: CN)
  Receive Date: 20160601
  Receipt Date: 20160601
  Transmission Date: 20160815
  Serious: Yes (Other)
  Sender: FDA-Public Use
  Company Number: CN-ROCHE-1767251

PATIENT

DRUGS (9)
  1. CAPECITABINE. [Suspect]
     Active Substance: CAPECITABINE
     Indication: OESOPHAGEAL CARCINOMA
     Route: 065
  2. IRINOTECAN [Suspect]
     Active Substance: IRINOTECAN
     Indication: OESOPHAGEAL CARCINOMA
     Route: 065
  3. GEMCITABINE [Suspect]
     Active Substance: GEMCITABINE\GEMCITABINE HYDROCHLORIDE
     Indication: OESOPHAGEAL CARCINOMA
     Route: 065
  4. TS-1 [Suspect]
     Active Substance: GIMERACIL\OTERACIL\TEGAFUR
     Indication: OESOPHAGEAL CARCINOMA
     Route: 065
  5. OXALIPLATINE [Suspect]
     Active Substance: OXALIPLATIN
     Indication: OESOPHAGEAL CARCINOMA
     Route: 065
  6. PACLITAXEL. [Suspect]
     Active Substance: PACLITAXEL
     Indication: OESOPHAGEAL CARCINOMA
     Route: 065
  7. ETOPOSIDE. [Suspect]
     Active Substance: ETOPOSIDE
     Indication: OESOPHAGEAL CARCINOMA
     Route: 065
  8. FLUOROURACIL. [Suspect]
     Active Substance: FLUOROURACIL
     Indication: OESOPHAGEAL CARCINOMA
     Route: 065
  9. CISPLATIN. [Suspect]
     Active Substance: CISPLATIN
     Indication: OESOPHAGEAL CARCINOMA
     Route: 065

REACTIONS (10)
  - Fatigue [Unknown]
  - Diarrhoea [Unknown]
  - Liver injury [Unknown]
  - Nausea [Unknown]
  - Leukopenia [Unknown]
  - Arthralgia [Unknown]
  - Vomiting [Unknown]
  - Alopecia [Unknown]
  - Neutropenia [Unknown]
  - Myalgia [Unknown]
